FAERS Safety Report 18108310 (Version 1)
Quarter: 2020Q3

REPORT INFORMATION
  Report Type: Report from Study
  Country: US (occurrence: US)
  Receive Date: 20200804
  Receipt Date: 20200804
  Transmission Date: 20201103
  Serious: Yes (Hospitalization)
  Sender: FDA-Public Use
  Company Number: US-JNJFOC-20200739449

PATIENT
  Age: 24 Year
  Sex: Male

DRUGS (6)
  1. OXYCODONE [Concomitant]
     Active Substance: OXYCODONE
  2. STELARA [Suspect]
     Active Substance: USTEKINUMAB
     Indication: CROHN^S DISEASE
     Route: 058
     Dates: start: 20200214
  3. STELARA [Suspect]
     Active Substance: USTEKINUMAB
  4. CYCLOBENZAPRINE. [Concomitant]
     Active Substance: CYCLOBENZAPRINE
  5. CEPHALEXIN                         /00145501/ [Concomitant]
     Active Substance: CEPHALEXIN
  6. KEPPRA [Concomitant]
     Active Substance: LEVETIRACETAM

REACTIONS (8)
  - Myalgia [Unknown]
  - Road traffic accident [Unknown]
  - Postoperative wound infection [Unknown]
  - Transfusion [Unknown]
  - Diarrhoea [Unknown]
  - Spinal fracture [Unknown]
  - Dehydration [Unknown]
  - Dialysis [Unknown]

NARRATIVE: CASE EVENT DATE: 20200620
